FAERS Safety Report 5253813-0 (Version None)
Quarter: 2007Q1

REPORT INFORMATION
  Report Type: 
  Country: None (occurrence: None)
  Receive Date: 20070301
  Receipt Date: 20070220
  Transmission Date: 20070707
  Serious: Yes (Hospitalization, Other)
  Sender: FDA-Public Use
  Company Number: US-ABBOTT-07P-163-0359855-00

PATIENT
  Age: 23 Year
  Sex: Female

DRUGS (5)
  1. DIVALPROEX SODIUM [Suspect]
     Indication: BIPOLAR DISORDER
     Dosage: NOT REPORTED
  2. VENLAFAXINE HCL [Suspect]
     Indication: BIPOLAR DISORDER
     Dosage: NOT REPORTED
  3. TOPIRAMATE [Suspect]
     Indication: BIPOLAR DISORDER
     Dosage: NOT REPORTED
  4. RISPERDAL [Suspect]
     Indication: BIPOLAR DISORDER
     Dosage: NOT REPORTED
  5. CARBAMAZEPINE [Suspect]
     Indication: BIPOLAR DISORDER
     Dosage: NOT REPORTED

REACTIONS (3)
  - MULTIPLE DRUG OVERDOSE [None]
  - NEUROLEPTIC MALIGNANT SYNDROME [None]
  - SEROTONIN SYNDROME [None]
